FAERS Safety Report 23822318 (Version 1)
Quarter: 2024Q2

REPORT INFORMATION
  Report Type: Spontaneous
  Country: US (occurrence: US)
  Receive Date: 20240506
  Receipt Date: 20240506
  Transmission Date: 20240716
  Serious: No
  Sender: FDA-Public Use
  Company Number: US-PFIZER INC-PV202400057758

PATIENT
  Sex: Male

DRUGS (1)
  1. THROMBIN-JMI [Suspect]
     Active Substance: THROMBIN
     Dosage: UNK

REACTIONS (1)
  - Neoplasm [Unknown]
